FAERS Safety Report 23333637 (Version 1)
Quarter: 2023Q4

REPORT INFORMATION
  Report Type: Report from Study
  Country: US (occurrence: US)
  Receive Date: 20231222
  Receipt Date: 20231222
  Transmission Date: 20240109
  Serious: Yes (Other)
  Sender: FDA-Public Use
  Company Number: US-ABBVIE-5553379

PATIENT
  Age: 71 Year
  Sex: Female

DRUGS (1)
  1. HUMIRA [Suspect]
     Active Substance: ADALIMUMAB
     Indication: Crohn^s disease
     Dosage: CITRATE FREE?FORM STRENGTH: 40 MILLIGRAM
     Route: 058
     Dates: start: 20160118

REACTIONS (4)
  - Shoulder fracture [Not Recovered/Not Resolved]
  - Hip fracture [Recovering/Resolving]
  - Fall [Unknown]
  - Fall [Unknown]

NARRATIVE: CASE EVENT DATE: 20230801
